FAERS Safety Report 6152717-9 (Version None)
Quarter: 2009Q2

REPORT INFORMATION
  Report Type: 
  Country: None (occurrence: None)
  Receive Date: 20090409
  Receipt Date: 20090330
  Transmission Date: 20091009
  Serious: Yes (Hospitalization)
  Sender: FDA-Public Use
  Company Number: 235567K07USA

PATIENT
  Age: 43 Year
  Sex: Female

DRUGS (6)
  1. REBIF [Suspect]
     Indication: MULTIPLE SCLEROSIS
     Dosage: 44 MCG, 3 IN 1 WEEKS, SUBCUTANEOUS
     Route: 058
     Dates: start: 20060224, end: 20080521
  2. LEXAPRO [Suspect]
     Dosage: 40 MG, 20 MG
     Dates: end: 20070101
  3. LEXAPRO [Suspect]
     Dosage: 40 MG, 20 MG
     Dates: start: 20070101
  4. IBUPROFEN [Concomitant]
  5. SYNTHROID [Concomitant]
  6. OCYBUTIN (OXYBUTYNIN/00538901/) [Concomitant]

REACTIONS (7)
  - DEPRESSED MOOD [None]
  - FALL [None]
  - GAIT DISTURBANCE [None]
  - INJECTION SITE ERYTHEMA [None]
  - INJECTION SITE PAIN [None]
  - SELF-INJURIOUS IDEATION [None]
  - SUICIDE ATTEMPT [None]
